FAERS Safety Report 9995063 (Version 1)
Quarter: 2014Q1

REPORT INFORMATION
  Report Type: Spontaneous
  Country: FR (occurrence: FR)
  Receive Date: 20140311
  Receipt Date: 20140311
  Transmission Date: 20141002
  Serious: Yes (Death)
  Sender: FDA-Public Use
  Company Number: FR-CELGENEUS-056-50794-14024672

PATIENT
  Age: 72 Year
  Sex: Female
  Weight: 47 kg

DRUGS (1)
  1. VIDAZA [Suspect]
     Indication: ACUTE MYELOID LEUKAEMIA
     Route: 058
     Dates: start: 20091109

REACTIONS (1)
  - Acute myeloid leukaemia [Fatal]
